FAERS Safety Report 24608050 (Version 1)
Quarter: 2024Q4

REPORT INFORMATION
  Report Type: Spontaneous
  Country: FR (occurrence: FR)
  Receive Date: 20241112
  Receipt Date: 20241112
  Transmission Date: 20250115
  Serious: Yes (Life-Threatening)
  Sender: TEVA
  Company Number: None

PATIENT
  Age: 38 Year
  Sex: Male
  Weight: 59 kg

DRUGS (7)
  1. VALPROIC ACID [Suspect]
     Active Substance: VALPROIC ACID
     Indication: Wrong patient received product
     Dosage: 2 TABS OF 500 MG
     Route: 048
     Dates: start: 20240906, end: 20240906
  2. PHENERGAN [Suspect]
     Active Substance: PROMETHAZINE HYDROCHLORIDE
     Indication: Wrong patient received product
     Route: 048
     Dates: start: 20240906, end: 20240906
  3. RISPERDAL [Suspect]
     Active Substance: RISPERIDONE
     Indication: Autism spectrum disorder
     Route: 048
  4. CLOZAPINE [Suspect]
     Active Substance: CLOZAPINE
     Indication: Wrong patient received product
     Dosage: 3 TABS OF 100 MG: SCORED TABLET
     Route: 048
     Dates: start: 20240906, end: 20240906
  5. MESTINON [Suspect]
     Active Substance: PYRIDOSTIGMINE BROMIDE
     Indication: Wrong patient received product
     Dosage: 1 TAB OF 60 MG
     Route: 048
     Dates: start: 20240906, end: 20240906
  6. TRANXENE [Suspect]
     Active Substance: CLORAZEPATE DIPOTASSIUM
     Indication: Anxiety
     Route: 048
  7. VALIUM [Suspect]
     Active Substance: DIAZEPAM
     Indication: Wrong patient received product
     Dosage: 1 TAB OF 10 MG: SCORED TABLET
     Route: 048
     Dates: start: 20240906, end: 20240906

REACTIONS (2)
  - Coma [Recovered/Resolved]
  - Wrong patient received product [Recovered/Resolved]

NARRATIVE: CASE EVENT DATE: 20240906
